FAERS Safety Report 24174997 (Version 1)
Quarter: 2024Q3

REPORT INFORMATION
  Report Type: Spontaneous
  Country: US (occurrence: US)
  Receive Date: 20240805
  Receipt Date: 20240805
  Transmission Date: 20241017
  Serious: No
  Sender: ABBVIE
  Company Number: US-ABBVIE-5856457

PATIENT
  Age: 28 Year
  Sex: Male

DRUGS (2)
  1. ADALIMUMAB [Suspect]
     Active Substance: ADALIMUMAB
     Indication: Psoriatic arthropathy
     Route: 058
  2. ADALIMUMAB [Suspect]
     Active Substance: ADALIMUMAB
     Indication: Tumour necrosis

REACTIONS (6)
  - General symptom [Unknown]
  - Back pain [Unknown]
  - Abscess limb [Unknown]
  - Abscess limb [Unknown]
  - Productive cough [Unknown]
  - Paraspinal abscess [Unknown]
